FAERS Safety Report 15432342 (Version 2)
Quarter: 2018Q4

REPORT INFORMATION
  Report Type: Spontaneous
  Country: DE (occurrence: DE)
  Receive Date: 20180926
  Receipt Date: 20181012
  Transmission Date: 20190204
  Serious: Yes (Other)
  Sender: FDA-Public Use
  Company Number: DE-ASTRAZENECA-2018SF23871

PATIENT
  Age: 69 Year
  Sex: Female
  Weight: 50 kg

DRUGS (3)
  1. NEXIUM [Suspect]
     Active Substance: ESOMEPRAZOLE MAGNESIUM
     Indication: PROPHYLAXIS AGAINST GASTROINTESTINAL ULCER
     Route: 048
     Dates: start: 20070122, end: 20070215
  2. CITALOPRAM [Suspect]
     Active Substance: CITALOPRAM HYDROBROMIDE
     Indication: DEPRESSION
     Dosage: 10-20 MG UNKNOWN
     Route: 048
     Dates: start: 20070122, end: 20070215
  3. KATADOLON S LONG [Suspect]
     Active Substance: FLUPIRTINE
     Indication: PAIN
     Route: 048
     Dates: start: 20061211, end: 20070215

REACTIONS (1)
  - Cholestasis [Recovering/Resolving]

NARRATIVE: CASE EVENT DATE: 20070213
